FAERS Safety Report 17552352 (Version 1)
Quarter: 2020Q1

REPORT INFORMATION
  Report Type: Spontaneous
  Country: BR (occurrence: BR)
  Receive Date: 20200317
  Receipt Date: 20200317
  Transmission Date: 20200409
  Serious: Yes (Other)
  Sender: FDA-Public Use
  Company Number: BR-ALEXION PHARMACEUTICALS INC.-A201809783

PATIENT
  Age: 45 Year
  Sex: Female
  Weight: 44 kg

DRUGS (3)
  1. SOLIRIS [Suspect]
     Active Substance: ECULIZUMAB
     Indication: PAROXYSMAL NOCTURNAL HAEMOGLOBINURIA
     Dosage: 600 MG, QW
     Route: 042
     Dates: start: 20130924, end: 20131015
  2. SOLIRIS [Suspect]
     Active Substance: ECULIZUMAB
     Dosage: 900 MG, Q2W
     Route: 042
     Dates: start: 20131022
  3. FOLIC ACID. [Concomitant]
     Active Substance: FOLIC ACID
     Indication: PRODUCT USED FOR UNKNOWN INDICATION
     Dosage: 1 TABLET, QD
     Route: 065
     Dates: start: 2009

REACTIONS (11)
  - Chromaturia [Recovered/Resolved]
  - Head discomfort [Unknown]
  - Dizziness [Recovered/Resolved]
  - Feeding disorder [Recovered/Resolved]
  - Dysphagia [Recovered/Resolved]
  - Dehydration [Recovered/Resolved]
  - Ill-defined disorder [Unknown]
  - Haemolysis [Recovered/Resolved]
  - Asthenia [Recovered/Resolved]
  - Vomiting [Unknown]
  - Headache [Not Recovered/Not Resolved]

NARRATIVE: CASE EVENT DATE: 201804
